FAERS Safety Report 7906233-1 (Version None)
Quarter: 2011Q4

REPORT INFORMATION
  Report Type: 
  Country: None (occurrence: None)
  Receive Date: 20111110
  Receipt Date: 20111102
  Transmission Date: 20120403
  Serious: Yes (Death)
  Sender: FDA-Public Use
  Company Number: DE-UCBSA-044920

PATIENT
  Age: 84 Year
  Sex: Male
  Weight: 100 kg

DRUGS (1)
  1. KEPPRA [Suspect]
     Indication: PARTIAL SEIZURES
     Route: 048
     Dates: start: 20110202, end: 20110504

REACTIONS (1)
  - PANCYTOPENIA [None]
